FAERS Safety Report 23758393 (Version 2)
Quarter: 2024Q2

REPORT INFORMATION
  Report Type: Spontaneous
  Country: GB (occurrence: GB)
  Receive Date: 20240418
  Receipt Date: 20240502
  Transmission Date: 20240716
  Serious: Yes (Other)
  Sender: FDA-Public Use
  Company Number: None

PATIENT
  Age: 92 Year
  Sex: Female

DRUGS (8)
  1. LEVOFLOXACIN [Suspect]
     Active Substance: LEVOFLOXACIN
     Indication: Pneumonia
     Route: 065
     Dates: start: 20240323
  2. OMEPRAZOLE [Concomitant]
     Active Substance: OMEPRAZOLE
  3. MEMANTINE [Concomitant]
     Active Substance: MEMANTINE
  4. CARBIMAZOLE [Concomitant]
     Active Substance: CARBIMAZOLE
  5. GAVISCON [Concomitant]
     Active Substance: ALUMINUM HYDROXIDE\MAGNESIUM CARBONATE
  6. FUROSEMIDE [Concomitant]
     Active Substance: FUROSEMIDE
  7. DOCUSATE [Concomitant]
     Active Substance: DOCUSATE
  8. BISOPROLOL [Concomitant]
     Active Substance: BISOPROLOL\BISOPROLOL FUMARATE

REACTIONS (1)
  - Partial seizures [Recovered/Resolved]

NARRATIVE: CASE EVENT DATE: 20240324
